FAERS Safety Report 14663000 (Version 1)
Quarter: 2018Q1

REPORT INFORMATION
  Report Type: Report from Study
  Country: CA (occurrence: CA)
  Receive Date: 20180321
  Receipt Date: 20180321
  Transmission Date: 20180509
  Serious: Yes (Other)
  Sender: FDA-Public Use
  Company Number: CA-BRISTOL-MYERS SQUIBB COMPANY-BMS-2018-022033

PATIENT
  Age: 56 Year
  Sex: Female

DRUGS (2)
  1. TYLENOL [Suspect]
     Active Substance: ACETAMINOPHEN
     Indication: PRODUCT USED FOR UNKNOWN INDICATION
     Dosage: 650 MG, UNK
     Route: 065
  2. ABATACEPT [Suspect]
     Active Substance: ABATACEPT
     Indication: RHEUMATOID ARTHRITIS
     Dosage: 125 MG, QWK
     Route: 058

REACTIONS (10)
  - Anxiety [Unknown]
  - Pallor [Unknown]
  - Asthenia [Unknown]
  - Cough [Unknown]
  - Dysphonia [Unknown]
  - Pain [Unknown]
  - Food poisoning [Unknown]
  - Abdominal symptom [Unknown]
  - Hepatotoxicity [Unknown]
  - Diarrhoea [Unknown]
